FAERS Safety Report 17485752 (Version 1)
Quarter: 2020Q1

REPORT INFORMATION
  Report Type: Spontaneous
  Country: US (occurrence: US)
  Receive Date: 20200302
  Receipt Date: 20200302
  Transmission Date: 20200409
  Serious: Yes (Other)
  Sender: FDA-Public Use
  Company Number: US-EMCURE PHARMACEUTICALS LTD-2020-EPL-000218

PATIENT
  Sex: Female

DRUGS (14)
  1. HYDRALAZINE HYDROCHLORIDE. [Suspect]
     Active Substance: HYDRALAZINE HYDROCHLORIDE
     Indication: HYPERTENSION
     Dosage: 10 MILLIGRAM PER DAY
  2. HYDROXYCHLOROQUINE [Suspect]
     Active Substance: HYDROXYCHLOROQUINE
     Indication: ARTHRITIS
     Dosage: 400 MILLIGRAM PER DAY
  3. HYDROXYCHLOROQUINE [Suspect]
     Active Substance: HYDROXYCHLOROQUINE
     Indication: AUTOIMMUNE ARTHRITIS
  4. MELOXICAM. [Suspect]
     Active Substance: MELOXICAM
     Indication: ARTHRITIS
  5. PREDNISONE. [Suspect]
     Active Substance: PREDNISONE
     Indication: ARTHRITIS
     Dosage: 7.5 MILLIGRAM DAILY
  6. MELOXICAM. [Suspect]
     Active Substance: MELOXICAM
     Indication: AUTOIMMUNE ARTHRITIS
     Dosage: 15 MILLIGRAM DAILY
  7. SULFASALAZINE. [Suspect]
     Active Substance: SULFASALAZINE
     Indication: ARTHRITIS ENTEROPATHIC
     Dosage: 2 GRAM, BID
  8. DICLOXACILLIN [Suspect]
     Active Substance: DICLOXACILLIN
     Indication: MASTITIS
     Dosage: 500 MILLIGRAM, THREE DOSES OVER A 12-HOUR PERIOD
  9. PREDNISONE. [Suspect]
     Active Substance: PREDNISONE
     Indication: AUTOIMMUNE ARTHRITIS
     Dosage: 20 MILLIGRAM DAILY
  10. NAPROXEN. [Concomitant]
     Active Substance: NAPROXEN
     Indication: AUTOIMMUNE ARTHRITIS
     Dosage: DAILY
  11. SULFASALAZINE. [Suspect]
     Active Substance: SULFASALAZINE
     Indication: ARTHRITIS
  12. NAPROXEN. [Concomitant]
     Active Substance: NAPROXEN
     Indication: ARTHRITIS
  13. HYDRALAZINE HYDROCHLORIDE. [Suspect]
     Active Substance: HYDRALAZINE HYDROCHLORIDE
     Dosage: 60 MILLIGRAM PER DAY
  14. HYDROCHLOROTHIAZIDE. [Suspect]
     Active Substance: HYDROCHLOROTHIAZIDE
     Indication: HYPERTENSION
     Dosage: UNK

REACTIONS (2)
  - Lupus-like syndrome [Recovering/Resolving]
  - Maternal exposure during pregnancy [Unknown]
